FAERS Safety Report 20770119 (Version 1)
Quarter: 2022Q2

REPORT INFORMATION
  Report Type: Spontaneous
  Country: US (occurrence: US)
  Receive Date: 20220429
  Receipt Date: 20220429
  Transmission Date: 20220721
  Serious: No
  Sender: FDA-Public Use
  Company Number: US-ABBVIE-21K-163-4013710-00

PATIENT
  Age: 78 Year
  Sex: Male
  Weight: 81.720 kg

DRUGS (8)
  1. ANDROGEL [Suspect]
     Active Substance: TESTOSTERONE
     Indication: Blood testosterone decreased
     Dosage: 2 ANDROGEL PUMPS
     Route: 061
     Dates: start: 201912, end: 202012
  2. ANDROGEL [Suspect]
     Active Substance: TESTOSTERONE
     Indication: Sexual dysfunction
     Dosage: 3 ANDROGEL PUMPS
     Route: 061
     Dates: start: 202101, end: 2021
  3. ANDROGEL [Suspect]
     Active Substance: TESTOSTERONE
     Route: 061
     Dates: start: 2021
  4. SOTALOL [Concomitant]
     Active Substance: SOTALOL
     Indication: Arrhythmia
  5. ELIQUIS [Concomitant]
     Active Substance: APIXABAN
     Indication: Anticoagulant therapy
  6. TERAZOSIN [Concomitant]
     Active Substance: TERAZOSIN HYDROCHLORIDE
     Indication: Prostatomegaly
  7. PFIZER-BIONTECH COVID-19 VACCINE [Concomitant]
     Active Substance: TOZINAMERAN
     Indication: COVID-19 immunisation
     Dosage: PFIZER
     Route: 030
     Dates: start: 20210108, end: 20210108
  8. PFIZER-BIONTECH COVID-19 VACCINE [Concomitant]
     Active Substance: TOZINAMERAN
     Dosage: PFIZER
     Route: 030
     Dates: start: 20210128, end: 20210128

REACTIONS (5)
  - Product administered at inappropriate site [Not Recovered/Not Resolved]
  - Off label use [Unknown]
  - Product prescribing error [Unknown]
  - Blood testosterone decreased [Not Recovered/Not Resolved]
  - Drug ineffective [Recovered/Resolved]

NARRATIVE: CASE EVENT DATE: 20191201
